FAERS Safety Report 13649846 (Version 1)
Quarter: 2017Q2

REPORT INFORMATION
  Report Type: Spontaneous
  Country: US (occurrence: US)
  Receive Date: 20170613
  Receipt Date: 20170613
  Transmission Date: 20170830
  Serious: Yes (Life-Threatening, Hospitalization)
  Sender: FDA-Public Use
  Company Number: None

PATIENT
  Age: 63 Year
  Sex: Male
  Weight: 103.8 kg

DRUGS (9)
  1. FOSAPREPITANT [Concomitant]
     Active Substance: FOSAPREPITANT
  2. DEXAMETHASONE. [Concomitant]
     Active Substance: DEXAMETHASONE
  3. CARVEDILOL. [Concomitant]
     Active Substance: CARVEDILOL
  4. MORPHINE [Concomitant]
     Active Substance: MORPHINE
  5. DOXORUBICIN [Concomitant]
     Active Substance: DOXORUBICIN
  6. LARTRUVO [Suspect]
     Active Substance: OLARATUMAB
     Indication: SARCOMA
     Dosage: ?          OTHER FREQUENCY:ONCE;?
     Route: 041
     Dates: start: 20170602, end: 20170602
  7. ONDANSETRON [Concomitant]
     Active Substance: ONDANSETRON
  8. DIPHENHYDRAMINE. [Concomitant]
     Active Substance: DIPHENHYDRAMINE
  9. OLARATUMAB [Concomitant]
     Active Substance: OLARATUMAB

REACTIONS (4)
  - Vomiting [None]
  - Infusion related reaction [None]
  - Cough [None]
  - Dyspnoea [None]

NARRATIVE: CASE EVENT DATE: 20170602
